FAERS Safety Report 5654900-5 (Version None)
Quarter: 2008Q1

REPORT INFORMATION
  Report Type: 
  Country: None (occurrence: None)
  Receive Date: 20080307
  Receipt Date: 20070824
  Transmission Date: 20080703
  Serious: No
  Sender: FDA-Public Use
  Company Number: A0677439A

PATIENT
  Age: 52 Year
  Sex: Female

DRUGS (4)
  1. REQUIP [Suspect]
     Indication: RESTLESS LEGS SYNDROME
     Route: 048
  2. CLONAZEPAM [Concomitant]
     Indication: RESTLESS LEGS SYNDROME
     Dosage: 3MG AT NIGHT
     Route: 048
     Dates: start: 19980615
  3. TRAZODONE HCL [Concomitant]
  4. PHENERGAN HCL [Concomitant]

REACTIONS (1)
  - DRUG INEFFECTIVE [None]
